FAERS Safety Report 9945214 (Version 1)
Quarter: 2014Q1

REPORT INFORMATION
  Report Type: Report from Study
  Country: US (occurrence: US)
  Receive Date: 20140303
  Receipt Date: 20140303
  Transmission Date: 20141002
  Serious: No
  Sender: FDA-Public Use
  Company Number: US-ABBVIE-13P-163-1050665-00

PATIENT
  Age: 32 Year
  Sex: Female

DRUGS (17)
  1. HUMIRA [Suspect]
     Indication: CROHN^S DISEASE
     Dates: start: 20121119
  2. LEVOTHYROXINE [Concomitant]
     Indication: HYPOTHYROIDISM
     Dosage: 125 MG DAILY
     Route: 048
  3. CITALOPRAM [Concomitant]
     Indication: DEPRESSION
     Dosage: 20 MG DAILY
     Route: 048
  4. LORAZEPAM [Concomitant]
     Indication: ANXIETY
     Dosage: 1 MG DAILY
     Route: 048
  5. BETAMETHASONE DIPROPIONATE CREAM USP AUGMENTED [Concomitant]
     Indication: ECZEMA
     Dosage: TO APPLY TO AFFECTED AREA AS NEEDED
  6. BETAMETHASONE DIPROPIONATE CREAM USP AUGMENTED [Concomitant]
     Indication: PSORIASIS
  7. ASACOL [Concomitant]
     Indication: CROHN^S DISEASE
     Dosage: 400 MG, 8 TABS DAILY
     Route: 048
  8. AVIANE [Concomitant]
     Indication: CONTRACEPTION
     Dosage: 28 DAILY
     Route: 048
  9. ACYCLOVIR [Concomitant]
     Indication: PRODUCT USED FOR UNKNOWN INDICATION
     Dosage: PATIENT DID NOT WANT TO DISCLOSE THE DRUG INDICATION
     Route: 048
  10. FISH OIL WITH OMEGA 3 [Concomitant]
     Indication: DEPRESSED LEVEL OF CONSCIOUSNESS
     Dosage: 2400 MG DAILY
  11. L-LYSINE [Concomitant]
     Indication: SKIN DISORDER
     Dosage: 200 MG DAILY
     Route: 048
  12. ALIVE MULTIVITAMIN GUMMIES [Concomitant]
     Indication: VITAMIN SUPPLEMENTATION
  13. VITAMIN B12 (CYANOCOBALAMIN AND ANALOGUES) [Concomitant]
     Indication: VITAMIN SUPPLEMENTATION
     Dosage: 2000 MG DAILY
     Route: 048
  14. PAPAYA ENZYMES [Concomitant]
     Indication: CROHN^S DISEASE
  15. DIPHENHYDRAMINE [Concomitant]
     Indication: INSOMNIA
     Dosage: 25 MG, 2 TABS DAILY AT BEDTIME
  16. NAPROXEN SODIUM [Concomitant]
     Indication: HEADACHE
     Dosage: 220 MG DAILY
     Route: 048
  17. PHENYLEPHRINE [Concomitant]
     Indication: SINUS CONGESTION
     Dosage: 10 MG DAILY
     Route: 048

REACTIONS (1)
  - Alopecia [Recovering/Resolving]
